FAERS Safety Report 9847429 (Version 1)
Quarter: 2014Q1

REPORT INFORMATION
  Report Type: Spontaneous
  Country: US (occurrence: US)
  Receive Date: 20140127
  Receipt Date: 20140127
  Transmission Date: 20141002
  Serious: No
  Sender: FDA-Public Use
  Company Number: US-SANOFI-AVENTIS-2012SA052519

PATIENT
  Age: 49 Year
  Sex: Male

DRUGS (4)
  1. KETEK [Suspect]
     Indication: LYME DISEASE
     Route: 058
     Dates: start: 2004
  2. OMNICEF [Concomitant]
  3. AUGMENTIN [Concomitant]
  4. METRONIDAZOLE [Concomitant]

REACTIONS (2)
  - Therapeutic response unexpected [Unknown]
  - Off label use [Unknown]
